FAERS Safety Report 17888783 (Version 1)
Quarter: 2020Q2

REPORT INFORMATION
  Report Type: Spontaneous
  Country: US (occurrence: US)
  Receive Date: 20200612
  Receipt Date: 20200612
  Transmission Date: 20200714
  Serious: No
  Sender: FDA-Public Use
  Company Number: None

PATIENT
  Age: 67 Year
  Sex: Female
  Weight: 87.48 kg

DRUGS (17)
  1. CYMBALTA [Concomitant]
     Active Substance: DULOXETINE HYDROCHLORIDE
  2. GLUCOSAMINE + VIT D [Concomitant]
  3. MAGIC MOUTHWASH [Concomitant]
     Active Substance: DIPHENHYDRAMINE HYDROCHLORIDE\LIDOCAINE HYDROCHLORIDE\NYSTATIN
  4. FLONASE [Concomitant]
     Active Substance: FLUTICASONE PROPIONATE
  5. CRANBERRY. [Concomitant]
     Active Substance: CRANBERRY
  6. BENADRYL [Concomitant]
     Active Substance: DIPHENHYDRAMINE HYDROCHLORIDE
  7. LYNPARZA [Concomitant]
     Active Substance: OLAPARIB
  8. TIZANIDINE. [Concomitant]
     Active Substance: TIZANIDINE
  9. CAPECITABINE. [Suspect]
     Active Substance: CAPECITABINE
     Indication: BREAST CANCER
     Route: 048
     Dates: start: 20200605
  10. CALCIUM + VIT D [Concomitant]
     Active Substance: CALCIUM\VITAMIN D
  11. LORAZEPAM. [Concomitant]
     Active Substance: LORAZEPAM
  12. METOPROLOL. [Concomitant]
     Active Substance: METOPROLOL
  13. NAPROXEN. [Concomitant]
     Active Substance: NAPROXEN
  14. UREA CREAM [Concomitant]
     Active Substance: UREA
  15. CAPECITABINE. [Suspect]
     Active Substance: CAPECITABINE
     Indication: BREAST CANCER
     Route: 048
     Dates: start: 20200605
  16. AZELASTINE. [Concomitant]
     Active Substance: AZELASTINE HYDROCHLORIDE
  17. METROGEL [Concomitant]
     Active Substance: METRONIDAZOLE

REACTIONS (4)
  - Skin exfoliation [None]
  - Dry skin [None]
  - Pruritus [None]
  - Peripheral swelling [None]

NARRATIVE: CASE EVENT DATE: 20200612
